FAERS Safety Report 9579857 (Version 2)
Quarter: 2013Q4

REPORT INFORMATION
  Report Type: Spontaneous
  Country: BA (occurrence: BA)
  Receive Date: 20131002
  Receipt Date: 20131022
  Transmission Date: 20140711
  Serious: Yes (Death, Hospitalization)
  Sender: FDA-Public Use
  Company Number: BA-ROCHE-1283647

PATIENT
  Sex: Female
  Weight: 57 kg

DRUGS (1)
  1. PEGASYS [Suspect]
     Indication: HEPATITIS C
     Dosage: THE DOSE WAS DECREASED TO 135 MCG AND LATER, UPON IMPROVING BLOOD COUNT IT WAS INCREASED TO 180 MCG
     Route: 058
     Dates: start: 20120727, end: 20130816

REACTIONS (2)
  - Cerebrovascular accident [Fatal]
  - Blood count abnormal [Unknown]
